FAERS Safety Report 9482565 (Version 1)
Quarter: 2013Q3

REPORT INFORMATION
  Report Type: Report from Study
  Country: JP (occurrence: JP)
  Receive Date: 20130828
  Receipt Date: 20130828
  Transmission Date: 20140515
  Serious: Yes (Other)
  Sender: FDA-Public Use
  Company Number: JP-SANOFI-AVENTIS-2013SA083800

PATIENT
  Age: 75 Year
  Sex: Male
  Weight: 46 kg

DRUGS (11)
  1. PLAVIX [Suspect]
     Indication: ACUTE MYOCARDIAL INFARCTION
     Dosage: LOADING DOSE
     Route: 048
     Dates: start: 20120531, end: 20120531
  2. PLAVIX [Suspect]
     Indication: ACUTE MYOCARDIAL INFARCTION
     Dosage: MAINTENANCE DOSE
     Route: 048
     Dates: start: 20120601, end: 20121011
  3. ASPIRIN [Concomitant]
     Indication: ACUTE MYOCARDIAL INFARCTION
     Route: 048
     Dates: start: 20120531
  4. LASIX [Concomitant]
     Indication: ACUTE MYOCARDIAL INFARCTION
     Route: 048
     Dates: start: 20120602
  5. PARIET [Concomitant]
     Indication: PROPHYLAXIS
     Route: 048
     Dates: start: 20120601
  6. DIOVANE [Concomitant]
     Route: 048
     Dates: start: 20120602
  7. JANUVIA [Concomitant]
     Route: 048
     Dates: start: 20120602
  8. WARFARIN [Concomitant]
     Route: 048
     Dates: start: 20120605, end: 20130403
  9. FRANDOL [Concomitant]
     Indication: ACUTE MYOCARDIAL INFARCTION
     Dosage: FORM: TAPE
     Route: 062
     Dates: start: 20120605
  10. ALDACTONE-A [Concomitant]
     Indication: ACUTE MYOCARDIAL INFARCTION
     Route: 048
     Dates: start: 20120605
  11. AMARYL [Concomitant]
     Route: 048
     Dates: start: 20130118

REACTIONS (1)
  - Small intestine carcinoma [Not Recovered/Not Resolved]
